FAERS Safety Report 9095772 (Version 1)
Quarter: 2013Q1

REPORT INFORMATION
  Report Type: Spontaneous
  Country: GB (occurrence: GB)
  Receive Date: 20130219
  Receipt Date: 20130219
  Transmission Date: 20140127
  Serious: Yes (Hospitalization)
  Sender: FDA-Public Use
  Company Number: GB-TEVA-385882ISR

PATIENT
  Age: 55 Year
  Sex: Female
  Weight: 50.8 kg

DRUGS (1)
  1. PROVIGIL [Suspect]
     Indication: HYPERSOMNIA
     Route: 048
     Dates: start: 20101114, end: 20101121

REACTIONS (9)
  - Pain [Recovering/Resolving]
  - Skin burning sensation [Recovering/Resolving]
  - Myalgia [Recovering/Resolving]
  - Tongue spasm [Recovering/Resolving]
  - Hyperaesthesia [Recovering/Resolving]
  - Abdominal pain upper [Recovering/Resolving]
  - Diarrhoea [Recovering/Resolving]
  - Abnormal faeces [Recovering/Resolving]
  - Hyperventilation [Recovering/Resolving]
